FAERS Safety Report 24563962 (Version 1)
Quarter: 2024Q4

REPORT INFORMATION
  Report Type: Report from Study
  Country: DE (occurrence: DE)
  Receive Date: 20241030
  Receipt Date: 20241030
  Transmission Date: 20250115
  Serious: No
  Sender: ROCHE
  Company Number: DE-ML42393-1015-010-1_0

PATIENT
  Age: 46 Year
  Sex: Male

DRUGS (2)
  1. OCRELIZUMAB [Suspect]
     Active Substance: OCRELIZUMAB
     Indication: Relapsing multiple sclerosis
     Dosage: DOSE FREQUENCY: ONCE
     Route: 042
     Dates: start: 20231107
  2. OCRELIZUMAB [Suspect]
     Active Substance: OCRELIZUMAB
     Dosage: DOSE FREQUENCY: ONCE
     Route: 042
     Dates: start: 20240508

REACTIONS (1)
  - Influenza [Recovered/Resolved]

NARRATIVE: CASE EVENT DATE: 20240813
